FAERS Safety Report 13598777 (Version 1)
Quarter: 2017Q2

REPORT INFORMATION
  Report Type: Spontaneous
  Country: FR (occurrence: FR)
  Receive Date: 20170531
  Receipt Date: 20170531
  Transmission Date: 20170830
  Serious: Yes (Death, Hospitalization)
  Sender: FDA-Public Use
  Company Number: FR-JNJFOC-20170528088

PATIENT
  Age: 82 Year
  Sex: Male

DRUGS (16)
  1. KARDEGIC [Concomitant]
     Active Substance: ASPIRIN LYSINE
     Route: 065
  2. CORDARONE [Concomitant]
     Active Substance: AMIODARONE HYDROCHLORIDE
     Route: 065
  3. PANTOPRAZOLE [Concomitant]
     Active Substance: PANTOPRAZOLE
     Route: 065
  4. SERESTA [Concomitant]
     Active Substance: OXAZEPAM
     Route: 065
  5. MORPHINE [Concomitant]
     Active Substance: MORPHINE
     Route: 065
  6. IMOVANE [Concomitant]
     Active Substance: ZOPICLONE
     Route: 065
  7. CARDENSIEL [Concomitant]
     Active Substance: BISOPROLOL FUMARATE
     Route: 065
  8. IMBRUVICA [Suspect]
     Active Substance: IBRUTINIB
     Indication: MANTLE CELL LYMPHOMA STAGE IV
     Route: 048
     Dates: start: 20170303
  9. HALDOL [Concomitant]
     Active Substance: HALOPERIDOL
     Dosage: 1/4 VIAL
     Route: 042
  10. LOVENOX [Concomitant]
     Active Substance: ENOXAPARIN SODIUM
     Dosage: 4000 UI/DAY
     Route: 065
  11. VALACICLOVIR [Concomitant]
     Active Substance: VALACYCLOVIR HYDROCHLORIDE
     Route: 065
  12. PARACETAMOL [Concomitant]
     Active Substance: ACETAMINOPHEN
     Route: 065
  13. BACTRIM [Concomitant]
     Active Substance: SULFAMETHOXAZOLE\TRIMETHOPRIM
     Route: 065
  14. ISOSORBIDE DINITRATE. [Concomitant]
     Active Substance: ISOSORBIDE DINITRATE
     Route: 065
  15. METHYLPREDNISOLONE. [Concomitant]
     Active Substance: METHYLPREDNISOLONE
     Route: 042
  16. NEFOPAM [Concomitant]
     Active Substance: NEFOPAM
     Dosage: IVSPE
     Route: 065

REACTIONS (3)
  - Hyponatraemia [Not Recovered/Not Resolved]
  - Incorrect dose administered [Unknown]
  - Off label use [Unknown]

NARRATIVE: CASE EVENT DATE: 20170303
